FAERS Safety Report 23322438 (Version 1)
Quarter: 2023Q4

REPORT INFORMATION
  Report Type: Spontaneous
  Country: US (occurrence: None)
  Receive Date: 20231220
  Receipt Date: 20231220
  Transmission Date: 20240110
  Serious: No
  Sender: FDA-Public Use
  Company Number: None

PATIENT

DRUGS (2)
  1. ACETYLCYSTEINE [Suspect]
     Active Substance: ACETYLCYSTEINE
  2. ACETAMINOPHEN [Suspect]
     Active Substance: ACETAMINOPHEN

REACTIONS (5)
  - Wrong product administered [None]
  - Product prescribing error [None]
  - Product dispensing error [None]
  - Product name confusion [None]
  - Product name confusion [None]
